FAERS Safety Report 23737337 (Version 1)
Quarter: 2024Q2

REPORT INFORMATION
  Report Type: Report from Study
  Country: ES (occurrence: ES)
  Receive Date: 20240412
  Receipt Date: 20240412
  Transmission Date: 20240716
  Serious: No
  Sender: FDA-Public Use
  Company Number: ES-KARYOPHARM-2024KPT000852

PATIENT
  Age: 82 Year
  Sex: Female

DRUGS (1)
  1. SELINEXOR [Suspect]
     Active Substance: SELINEXOR
     Indication: Product used for unknown indication

REACTIONS (1)
  - Hyponatraemia [Recovered/Resolved]

NARRATIVE: CASE EVENT DATE: 20240123
